FAERS Safety Report 14832862 (Version 26)
Quarter: 2019Q2

REPORT INFORMATION
  Report Type: Report from Study
  Country: CA (occurrence: CA)
  Receive Date: 20180501
  Receipt Date: 20190617
  Transmission Date: 20190711
  Serious: Yes (Hospitalization)
  Sender: FDA-Public Use
  Company Number: PHHY2017CA196020

PATIENT
  Age: 47 Year
  Sex: Female

DRUGS (17)
  1. ILARIS [Suspect]
     Active Substance: CANAKINUMAB
     Dosage: 300 MG,  EVERY 8 WEEKS
     Route: 058
     Dates: start: 20180418
  2. ILARIS [Suspect]
     Active Substance: CANAKINUMAB
     Dosage: 300 MG, UNK (EVERY 2 WEEKS)
     Route: 058
     Dates: start: 20181224
  3. ONDANSETRON [Suspect]
     Active Substance: ONDANSETRON
     Indication: NAUSEA
     Dosage: HALF A PILL TO ONE PILL DAILY
     Route: 048
  4. ONDANSETRON [Suspect]
     Active Substance: ONDANSETRON
     Dosage: ONE TO TWO PILLS DAILY
     Route: 048
  5. ILARIS [Suspect]
     Active Substance: CANAKINUMAB
     Dosage: 300 MG, QMO (4 WEEKS)
     Route: 058
     Dates: start: 20181031
  6. ILARIS [Suspect]
     Active Substance: CANAKINUMAB
     Dosage: 300 MG,  EVERY 8 WEEKS
     Route: 058
     Dates: start: 20180221
  7. ILARIS [Suspect]
     Active Substance: CANAKINUMAB
     Dosage: 300 MG, Q4WEEKS
     Route: 058
     Dates: start: 20180613
  8. ILARIS [Suspect]
     Active Substance: CANAKINUMAB
     Dosage: 300 MG, Q2W
     Route: 058
     Dates: start: 20190304
  9. ILARIS [Suspect]
     Active Substance: CANAKINUMAB
     Dosage: 300 MG, Q4WEEKS
     Route: 058
     Dates: start: 20181002
  10. ILARIS [Suspect]
     Active Substance: CANAKINUMAB
     Dosage: 150 MG, EVERY 8 WEEKS
     Route: 058
     Dates: start: 20171227
  11. ILARIS [Suspect]
     Active Substance: CANAKINUMAB
     Dosage: 300 MG, Q2W
     Route: 058
     Dates: start: 20190218
  12. ILARIS [Suspect]
     Active Substance: CANAKINUMAB
     Dosage: 300 MG, Q2W
     Route: 058
     Dates: start: 20190527
  13. PREDNISONE. [Concomitant]
     Active Substance: PREDNISONE
     Indication: PRODUCT USED FOR UNKNOWN INDICATION
     Route: 065
  14. ILARIS [Suspect]
     Active Substance: CANAKINUMAB
     Indication: FAMILIAL COLD AUTOINFLAMMATORY SYNDROME
     Dosage: 150 MG, EVERY 8 WEEKS
     Route: 058
     Dates: start: 20170906
  15. ILARIS [Suspect]
     Active Substance: CANAKINUMAB
     Dosage: 300 MG, Q2W
     Route: 058
     Dates: start: 20190402
  16. COLCHICINE. [Suspect]
     Active Substance: COLCHICINE
     Indication: PRODUCT USED FOR UNKNOWN INDICATION
     Route: 065
  17. CORTEL [Suspect]
     Active Substance: TELMISARTAN
     Indication: PRODUCT USED FOR UNKNOWN INDICATION
     Dosage: 30 MG, UNK
     Route: 065

REACTIONS (30)
  - Diarrhoea [Recovering/Resolving]
  - Weight decreased [Unknown]
  - White blood cell count decreased [Unknown]
  - Hot flush [Unknown]
  - Colitis [Unknown]
  - Nausea [Recovered/Resolved]
  - Insomnia [Unknown]
  - Hyperhidrosis [Unknown]
  - Abdominal pain upper [Unknown]
  - Chills [Unknown]
  - Adrenal disorder [Unknown]
  - Headache [Unknown]
  - Gait disturbance [Unknown]
  - Feeling cold [Unknown]
  - Dizziness [Recovered/Resolved]
  - Abdominal pain [Unknown]
  - Ear infection [Unknown]
  - Hypersomnia [Unknown]
  - Pain [Unknown]
  - Pain in extremity [Recovered/Resolved]
  - Rhinorrhoea [Unknown]
  - Vomiting [Unknown]
  - Familial cold autoinflammatory syndrome [Recovering/Resolving]
  - Cough [Unknown]
  - Body temperature increased [Unknown]
  - Nervousness [Unknown]
  - Nasopharyngitis [Unknown]
  - Fatigue [Not Recovered/Not Resolved]
  - Malaise [Unknown]
  - Anxiety [Unknown]

NARRATIVE: CASE EVENT DATE: 2017
